FAERS Safety Report 15234009 (Version 1)
Quarter: 2018Q4

REPORT INFORMATION
  Report Type: Spontaneous
  Country: GB (occurrence: GB)
  Receive Date: 20180802
  Receipt Date: 20180802
  Transmission Date: 20190204
  Serious: Yes (Other)
  Sender: FDA-Public Use
  Company Number: PHHY2018GB063683

PATIENT
  Age: 51 Year
  Sex: Male
  Weight: 82.55 kg

DRUGS (1)
  1. CALCIPOTRIOL SANDOZ [Suspect]
     Active Substance: CALCIPOTRIENE
     Indication: PSORIASIS
     Dosage: UNK, APPLIED TWICE A DAY FOR 1 WEEK...LESS THAN 60ML APPLIED IN A WEEK.
     Route: 003
     Dates: start: 20180210, end: 20180217

REACTIONS (5)
  - Dermatitis allergic [Not Recovered/Not Resolved]
  - Urticaria [Not Recovered/Not Resolved]
  - Dry skin [Not Recovered/Not Resolved]
  - Skin warm [Unknown]
  - Dermatitis [Not Recovered/Not Resolved]

NARRATIVE: CASE EVENT DATE: 20180217
